FAERS Safety Report 15241575 (Version 3)
Quarter: 2018Q3

REPORT INFORMATION
  Report Type: Spontaneous
  Country: BE (occurrence: BE)
  Receive Date: 20180805
  Receipt Date: 20180831
  Transmission Date: 20181010
  Serious: Yes (Life-Threatening, Hospitalization, Other)
  Sender: FDA-Public Use
  Company Number: PHHY2018BE003793

PATIENT
  Age: 54 Year
  Sex: Male

DRUGS (6)
  1. METOPROLOL. [Concomitant]
     Active Substance: METOPROLOL
     Indication: VENTRICULAR TACHYCARDIA
     Route: 065
  2. METHYLPREDNISOLONE. [Suspect]
     Active Substance: METHYLPREDNISOLONE
     Indication: HYPERTHYROIDISM
     Dosage: 16 MG, QD
     Route: 065
  3. AMIODARONE HYDROCHLORIDE. [Suspect]
     Active Substance: AMIODARONE HYDROCHLORIDE
     Indication: CONGESTIVE CARDIOMYOPATHY
     Dosage: 200 MG, QD
     Route: 065
  4. AMIODARONE HYDROCHLORIDE. [Suspect]
     Active Substance: AMIODARONE HYDROCHLORIDE
     Indication: VENTRICULAR TACHYCARDIA
  5. PROPRANOLOL HYDROCHLORIDE. [Suspect]
     Active Substance: PROPRANOLOL HYDROCHLORIDE
     Indication: HYPERTHYROIDISM
     Route: 065
  6. DIGOXIN. [Suspect]
     Active Substance: DIGOXIN
     Indication: HYPERTHYROIDISM
     Route: 065

REACTIONS (9)
  - Insomnia [Recovered/Resolved]
  - Ventricular arrhythmia [Recovered/Resolved]
  - Product use in unapproved indication [Unknown]
  - Heart rate increased [Recovered/Resolved]
  - Ventricular tachycardia [Recovered/Resolved]
  - Off label use [Unknown]
  - Hyperthyroidism [Recovered/Resolved]
  - Goitre [Recovered/Resolved]
  - Drug ineffective [Unknown]
